FAERS Safety Report 23852299 (Version 2)
Quarter: 2024Q3

REPORT INFORMATION
  Report Type: Spontaneous
  Country: FR (occurrence: FR)
  Receive Date: 20240514
  Receipt Date: 20240820
  Transmission Date: 20241016
  Serious: Yes (Hospitalization)
  Sender: ACCORD
  Company Number: None

PATIENT
  Age: 75 Year
  Sex: Male
  Weight: 138 kg

DRUGS (12)
  1. PRAVASTATIN SODIUM [Suspect]
     Active Substance: PRAVASTATIN SODIUM
     Indication: Hypercholesterolaemia
     Dosage: STRENGTH: 10 MG
     Dates: end: 20240413
  2. IRBESARTAN [Suspect]
     Active Substance: IRBESARTAN
     Indication: Hypertension
     Dosage: STRENGTH: 75 MG
     Dates: end: 20240413
  3. HYDROCHLOROTHIAZIDE [Suspect]
     Active Substance: HYDROCHLOROTHIAZIDE
     Indication: Hypertension
     Dosage: STRENGTH: 25 MG
     Dates: end: 20240413
  4. DICLOFENAC [Suspect]
     Active Substance: DICLOFENAC
     Indication: Rheumatic disorder
     Dosage: STRENGTH: 75 MG, PROLONGED-RELEASE COATED TABLET, IF PAIN
     Dates: start: 202401, end: 202404
  5. AMLODIPINE [Concomitant]
     Active Substance: AMLODIPINE BESYLATE
     Dosage: STRENGTH: 5 MG
  6. KARDEGIC [Concomitant]
     Active Substance: ASPIRIN DL-LYSINE
     Dosage: STRENGTH: 75 MG
  7. OMEPRAZOLE [Concomitant]
     Active Substance: OMEPRAZOLE
     Dosage: STRENGTH: 10 MG
  8. ALFUZOSIN [Concomitant]
     Active Substance: ALFUZOSIN
     Dosage: STRENFGTH: 10 MG
  9. PIRIBEDIL [Concomitant]
     Active Substance: PIRIBEDIL
     Dosage: STRENGTH: 50 MG, PROLONGED-RELEASE COATED TABLET
  10. BENSERAZIDE HYDROCHLORIDE\LEVODOPA [Concomitant]
     Active Substance: BENSERAZIDE HYDROCHLORIDE\LEVODOPA
     Dosage: STRENGTH: 62.5 (50 MG/12.5 MG)
  11. FERROUS SULFATE\FOLIC ACID [Concomitant]
     Active Substance: FERROUS SULFATE\FOLIC ACID
  12. CHOLECALCIFEROL [Concomitant]
     Active Substance: CHOLECALCIFEROL
     Dosage: STRENGTH: 100,000 IU

REACTIONS (1)
  - Acute kidney injury [Recovered/Resolved]

NARRATIVE: CASE EVENT DATE: 20240412
